FAERS Safety Report 5610216-4 (Version None)
Quarter: 2008Q1

REPORT INFORMATION
  Report Type: 
  Country: None (occurrence: None)
  Receive Date: 20080131
  Receipt Date: 20080121
  Transmission Date: 20080703
  Serious: Yes (Hospitalization)
  Sender: FDA-Public Use
  Company Number: DE-GENENTECH-255045

PATIENT
  Sex: Female
  Weight: 76 kg

DRUGS (5)
  1. HERCEPTIN [Suspect]
     Indication: BREAST CANCER
     Dosage: 182 MG, 1/WEEK
     Route: 042
     Dates: start: 20070626, end: 20071004
  2. UNKNOWN MEDICATION [Concomitant]
     Indication: DRUG USE FOR UNKNOWN INDICATION
  3. DOXORUBICIN HCL [Concomitant]
     Indication: BREAST CANCER
     Dates: start: 20070131
  4. FLUOROURACIL [Concomitant]
     Indication: BREAST CANCER
     Dates: start: 20070131
  5. CYCLOPHOSPHAMIDE [Concomitant]
     Indication: BREAST CANCER
     Dates: start: 20070131

REACTIONS (3)
  - CARDIAC FAILURE CONGESTIVE [None]
  - CYTOTOXIC CARDIOMYOPATHY [None]
  - RENAL FAILURE [None]
